FAERS Safety Report 5200728-X (Version None)
Quarter: 2006Q4

REPORT INFORMATION
  Report Type: 
  Country: None (occurrence: None)
  Receive Date: 20061016
  Receipt Date: 20051029
  Transmission Date: 20070319
  Serious: Yes (Other)
  Sender: FDA-Public Use
  Company Number: 2005120538

PATIENT
  Age: 55 Year
  Sex: Female

DRUGS (2)
  1. NEURONTIN [Suspect]
     Indication: ILL-DEFINED DISORDER
     Dosage: 900 MG (300 MG, 2 IN 1 D),
  2. KEPPRA [Suspect]
     Indication: ILL-DEFINED DISORDER
     Dosage: 2000 MG (500 MG, 2 IN 1 D)

REACTIONS (1)
  - CONVULSION [None]
